FAERS Safety Report 7157900-1 (Version None)
Quarter: 2010Q4

REPORT INFORMATION
  Report Type: 
  Country: None (occurrence: None)
  Receive Date: 20101214
  Receipt Date: 20101203
  Transmission Date: 20110411
  Serious: Yes (Hospitalization)
  Sender: FDA-Public Use
  Company Number: US-MERCK-1012USA01077

PATIENT
  Age: 83 Year
  Sex: Female

DRUGS (5)
  1. COZAAR [Suspect]
     Indication: HYPERTENSION
     Route: 048
     Dates: start: 20100901
  2. AMARYL [Concomitant]
     Route: 065
  3. ASPIRIN [Concomitant]
     Route: 065
  4. ISOSORBIDE [Concomitant]
     Route: 065
  5. NEXIUM [Concomitant]
     Route: 065

REACTIONS (6)
  - ASTHENIA [None]
  - HEADACHE [None]
  - HEART RATE DECREASED [None]
  - HYPERCHLORHYDRIA [None]
  - INAPPROPRIATE SCHEDULE OF DRUG ADMINISTRATION [None]
  - NAUSEA [None]
